FAERS Safety Report 14447105 (Version 3)
Quarter: 2018Q1

REPORT INFORMATION
  Report Type: Spontaneous
  Country: ES (occurrence: ES)
  Receive Date: 20180126
  Receipt Date: 20180313
  Transmission Date: 20180509
  Serious: Yes (Other)
  Sender: FDA-Public Use
  Company Number: ES-PFIZER INC-2018031895

PATIENT
  Age: 50 Year
  Sex: Female
  Weight: 53 kg

DRUGS (2)
  1. DOXORUBICIN HCL [Suspect]
     Active Substance: DOXORUBICIN HYDROCHLORIDE
     Indication: BREAST CANCER
     Dosage: 1 DF, SINGLE (NUMBER OF UNITS IN THE INTERVAL REPORTED AS 6)
     Route: 042
     Dates: start: 20170712, end: 20171011
  2. GENOXAL [Interacting]
     Active Substance: CYCLOPHOSPHAMIDE
     Indication: BREAST CANCER
     Dosage: 1 DF, SINGLE (NUMBER OF UNITS IN THE INTERVAL REPORTED AS 6)
     Route: 042
     Dates: start: 20170712, end: 20171011

REACTIONS (2)
  - Drug interaction [Recovered/Resolved]
  - Palmar-plantar erythrodysaesthesia syndrome [Recovered/Resolved]

NARRATIVE: CASE EVENT DATE: 20170812
